FAERS Safety Report 7070598-6 (Version None)
Quarter: 2010Q4

REPORT INFORMATION
  Report Type: 
  Country: None (occurrence: None)
  Receive Date: 20101029
  Receipt Date: 20101022
  Transmission Date: 20110411
  Serious: Yes (Hospitalization)
  Sender: FDA-Public Use
  Company Number: SE-PFIZER INC-2010134375

PATIENT
  Age: 71 Year
  Sex: Male

DRUGS (11)
  1. SALAZOPYRIN [Suspect]
     Indication: CROHN'S DISEASE
     Dosage: 2 G, UNK
     Dates: end: 20100205
  2. OMEPRAZOLE [Concomitant]
     Dosage: UNK
  3. ENALAPRIL [Concomitant]
     Dosage: UNK
  4. ZEMPLAR [Concomitant]
     Dosage: 1 UG, UNK
  5. BEHEPAN [Concomitant]
     Dosage: UNK
  6. ETALPHA [Concomitant]
     Dosage: UNK
  7. EMGESAN [Concomitant]
     Dosage: 250 MG, UNK
  8. ASPIRIN [Concomitant]
     Dosage: 75 MG, UNK
  9. IMOVANE [Concomitant]
     Dosage: UNK
  10. ALLOPURINOL [Concomitant]
     Dosage: UNK
  11. EMCONCOR CHF [Concomitant]
     Dosage: 1.25 MG, UNK

REACTIONS (2)
  - ARRHYTHMIA [None]
  - INTERSTITIAL LUNG DISEASE [None]
